FAERS Safety Report 22080157 (Version 1)
Quarter: 2023Q1

REPORT INFORMATION
  Report Type: Report from Study
  Country: ES (occurrence: ES)
  Receive Date: 20230309
  Receipt Date: 20230309
  Transmission Date: 20230418
  Serious: Yes (Hospitalization)
  Sender: FDA-Public Use
  Company Number: None

PATIENT
  Age: 78 Year
  Sex: Male

DRUGS (6)
  1. CLOPIDOGREL [Interacting]
     Active Substance: CLOPIDOGREL BISULFATE
     Indication: Thrombosis prophylaxis
     Dosage: CLOPIDOGREL (7300A)
     Route: 065
     Dates: start: 201201, end: 20220917
  2. ASPIRIN [Interacting]
     Active Substance: ASPIRIN
     Indication: Thrombosis prophylaxis
     Dosage: ADIRO 100 MG GASTRORESISTANT TABLETS EFG, 30 TABLETS (POLYPROPYLENE - ALUMINUM)
     Route: 065
     Dates: start: 201201, end: 20220917
  3. AMARYL [Concomitant]
     Active Substance: GLIMEPIRIDE
     Indication: Diabetes mellitus
     Dosage: 30 TABLETS
     Dates: start: 201201
  4. ATORVASTATIN [Concomitant]
     Active Substance: ATORVASTATIN
     Indication: Dyslipidaemia
     Dosage: ATORVASTATINA (7400A)
     Route: 065
     Dates: start: 201201
  5. METFORMIN HYDROCHLORIDE [Concomitant]
     Active Substance: METFORMIN HYDROCHLORIDE
     Indication: Diabetes mellitus
     Dosage: 50 TABLETS
     Dates: start: 201211
  6. LEXATIN [Concomitant]
     Indication: Insomnia
     Dosage: 30 CAPSULES
     Dates: start: 201201

REACTIONS (2)
  - Cerebral haemorrhage [Recovered/Resolved]
  - Drug interaction [Unknown]

NARRATIVE: CASE EVENT DATE: 20220917
